FAERS Safety Report 5515800-4 (Version None)
Quarter: 2007Q4

REPORT INFORMATION
  Report Type: 
  Country: None (occurrence: None)
  Receive Date: 20071109
  Receipt Date: 20071030
  Transmission Date: 20080405
  Serious: Yes (Hospitalization)
  Sender: FDA-Public Use
  Company Number: 2007JP001048

PATIENT
  Age: 4 Year
  Sex: Female

DRUGS (2)
  1. PROGRAF [Suspect]
     Indication: CORD BLOOD TRANSPLANT THERAPY
  2. METHOTREXATE [Concomitant]

REACTIONS (5)
  - CEREBRAL HAEMORRHAGE [None]
  - CYTOMEGALOVIRUS ANTIGEN POSITIVE [None]
  - HYPERTENSIVE ENCEPHALOPATHY [None]
  - PARALYSIS [None]
  - SPEECH DISORDER [None]
